FAERS Safety Report 16989378 (Version 2)
Quarter: 2019Q4

REPORT INFORMATION
  Report Type: Report from Study
  Country: FR (occurrence: FR)
  Receive Date: 20191104
  Receipt Date: 20191119
  Transmission Date: 20200122
  Serious: Yes (Other)
  Sender: FDA-Public Use
  Company Number: FR-JAZZ-2019-FR-015072

PATIENT
  Age: 23 Year
  Sex: Male
  Weight: 119 kg

DRUGS (7)
  1. URSOLVAN [Concomitant]
     Active Substance: URSODIOL
     Indication: VENOOCCLUSIVE DISEASE
     Dosage: 1.20 G,
     Route: 048
     Dates: start: 20171023, end: 20180312
  2. DEFITELIO [Suspect]
     Active Substance: DEFIBROTIDE SODIUM
     Indication: VENOOCCLUSIVE LIVER DISEASE
     Dosage: 17 MG/KG/DAY
     Route: 042
     Dates: start: 20171013
  3. DEFITELIO [Suspect]
     Active Substance: DEFIBROTIDE SODIUM
     Dosage: 27 MG/KG/DAY
     Dates: start: 20171023, end: 20171025
  4. DEFITELIO [Suspect]
     Active Substance: DEFIBROTIDE SODIUM
     Dosage: 25 MG/KG/DAY
     Dates: start: 20171115, end: 20171117
  5. OMEPRAZOLE. [Concomitant]
     Active Substance: OMEPRAZOLE
     Indication: PROPHYLAXIS
     Dosage: 80 MG,
     Route: 048
     Dates: start: 20171101, end: 20180312
  6. DEFITELIO [Suspect]
     Active Substance: DEFIBROTIDE SODIUM
     Dosage: 27 MG/KG/DAY
     Dates: start: 20171027, end: 20171114
  7. ZELITREX [Concomitant]
     Active Substance: VALACYCLOVIR HYDROCHLORIDE
     Indication: PROPHYLAXIS
     Dosage: 1 G,
     Route: 048
     Dates: start: 20170922, end: 20181203

REACTIONS (2)
  - Catheter site haemorrhage [Recovered/Resolved]
  - Intentional product use issue [Unknown]

NARRATIVE: CASE EVENT DATE: 20171023
